FAERS Safety Report 19131979 (Version 1)
Quarter: 2021Q2

REPORT INFORMATION
  Report Type: Spontaneous
  Country: US (occurrence: US)
  Receive Date: 20210413
  Receipt Date: 20210413
  Transmission Date: 20210717
  Serious: Yes (Other)
  Sender: FDA-Public Use
  Company Number: US-ARBOR PHARMACEUTICALS, LLC-US-2021ARB000404

PATIENT
  Age: 16 Month

DRUGS (1)
  1. IVERMECTIN. [Suspect]
     Active Substance: IVERMECTIN
     Indication: PRODUCT USED FOR UNKNOWN INDICATION
     Dosage: 6.7? 8.7 MG/ KG, SINGLE
     Route: 048

REACTIONS (5)
  - Toxicity to various agents [Unknown]
  - Vomiting [Unknown]
  - Hypotension [Unknown]
  - Tachycardia [Unknown]
  - Somnolence [Unknown]
